FAERS Safety Report 6660685-6 (Version None)
Quarter: 2010Q1

REPORT INFORMATION
  Report Type: 
  Country: None (occurrence: None)
  Receive Date: 20100331
  Receipt Date: 20100317
  Transmission Date: 20100710
  Serious: Yes (Hospitalization)
  Sender: FDA-Public Use
  Company Number: US-ELI_LILLY_AND_COMPANY-US201003006745

PATIENT
  Sex: Female

DRUGS (10)
  1. FORTEO [Suspect]
     Indication: OSTEOPOROSIS
     Dosage: 20 UG, DAILY (1/D)
     Dates: start: 20091001, end: 20100101
  2. FORTEO [Suspect]
     Dosage: 20 UG, DAILY (1/D)
     Dates: start: 20100313
  3. VICODIN [Concomitant]
     Dosage: 2 MG, UNK
  4. VALIUM [Concomitant]
  5. LOVENOX [Concomitant]
  6. CELEBREX [Concomitant]
  7. PRILOSEC [Concomitant]
  8. LEVOTHYROXINE SODIUM [Concomitant]
  9. MULTI-VIT [Concomitant]
  10. VITAMIN D [Concomitant]
     Dosage: 2000 IU, UNK

REACTIONS (1)
  - HIP SURGERY [None]
